FAERS Safety Report 4297673-3 (Version None)
Quarter: 2004Q1

REPORT INFORMATION
  Report Type: 
  Country: None (occurrence: None)
  Receive Date: 20040126
  Receipt Date: 20031105
  Transmission Date: 20041129
  Serious: No
  Sender: FDA-Public Use
  Company Number: USA031151799

PATIENT
  Age: 4 Year
  Sex: Male

DRUGS (1)
  1. STRATTERA [Suspect]
     Indication: ATTENTION DEFICIT/HYPERACTIVITY DISORDER
     Dosage: 40 MG/DAY

REACTIONS (9)
  - ABNORMAL BEHAVIOUR [None]
  - AGGRESSION [None]
  - CRYING [None]
  - DRUG INEFFECTIVE [None]
  - MIDDLE INSOMNIA [None]
  - MOOD SWINGS [None]
  - RESTLESSNESS [None]
  - SCREAMING [None]
  - SLEEP WALKING [None]
